FAERS Safety Report 9343818 (Version 2)
Quarter: 2013Q2

REPORT INFORMATION
  Report Type: Spontaneous
  Country: US (occurrence: US)
  Receive Date: 20130612
  Receipt Date: 20130617
  Transmission Date: 20140414
  Serious: Yes (Death, Hospitalization)
  Sender: FDA-Public Use
  Company Number: US-009507513-1306USA004466

PATIENT
  Age: 38 Year
  Sex: 0

DRUGS (4)
  1. ISENTRESS [Suspect]
     Indication: HIV INFECTION
     Dosage: UNK
  2. PREZISTA [Concomitant]
  3. NORVIR [Concomitant]
  4. EPZICOM [Concomitant]

REACTIONS (1)
  - Death [Fatal]
